FAERS Safety Report 24765146 (Version 1)
Quarter: 2024Q4

REPORT INFORMATION
  Report Type: Spontaneous
  Country: CN (occurrence: CN)
  Receive Date: 20241223
  Receipt Date: 20241223
  Transmission Date: 20250114
  Serious: Yes (Other)
  Sender: NOVARTIS
  Company Number: CN-002147023-NVSC2024CN241996

PATIENT
  Age: 59 Year
  Sex: Male
  Weight: 86 kg

DRUGS (4)
  1. CYCLOSPORINE [Suspect]
     Active Substance: CYCLOSPORINE
     Indication: Acute leukaemia
     Dosage: 75.000 MG, QD
     Route: 041
     Dates: start: 20241211, end: 20241211
  2. CYCLOSPORINE [Suspect]
     Active Substance: CYCLOSPORINE
     Dosage: 125.000 MG, QD
     Route: 041
     Dates: start: 20241213, end: 20241213
  3. SODIUM CHLORIDE [Concomitant]
     Active Substance: SODIUM CHLORIDE
     Indication: Vehicle solution use
     Dosage: 250.000 ML, QD
     Route: 041
     Dates: start: 20241211, end: 20241211
  4. SODIUM CHLORIDE [Concomitant]
     Active Substance: SODIUM CHLORIDE
     Dosage: 500.000 ML, QD
     Route: 041
     Dates: start: 20241213, end: 20241213

REACTIONS (3)
  - Hallucination, auditory [Recovering/Resolving]
  - Tremor [Recovering/Resolving]
  - Language disorder [Recovering/Resolving]

NARRATIVE: CASE EVENT DATE: 20241211
